FAERS Safety Report 6015812-0 (Version None)
Quarter: 2008Q4

REPORT INFORMATION
  Report Type: 
  Country: None (occurrence: None)
  Receive Date: 20081222
  Receipt Date: 20081211
  Transmission Date: 20090506
  Serious: Yes (Hospitalization)
  Sender: FDA-Public Use
  Company Number: FR-NOVOPROD-282320

PATIENT
  Age: 88 Year
  Sex: Male

DRUGS (8)
  1. NOVONORM [Suspect]
     Indication: DIABETES MELLITUS
     Dosage: 1 MG, BID
     Route: 048
     Dates: start: 20081107, end: 20081120
  2. CARDENSIEL [Concomitant]
     Dosage: 1.25 MG, QD
     Route: 048
  3. PLAVIX [Concomitant]
     Dosage: 75 MG, QD
     Route: 048
  4. VADILEX [Concomitant]
     Dosage: 20 MG, QD
     Route: 048
  5. LOXEN [Concomitant]
     Indication: HYPERTENSION
     Dosage: 100 MG, QD
     Route: 048
  6. OROKEN [Concomitant]
     Indication: PROSTATITIS
     Dosage: 400 MG, QD
     Route: 048
  7. XATRAL                             /00975301/ [Concomitant]
     Dosage: 10 MG, QD
     Route: 048
  8. DEROXAT [Concomitant]
     Dosage: 20 MG, QD
     Route: 048

REACTIONS (3)
  - AORTIC STENOSIS [None]
  - CONSTIPATION [None]
  - HYPOGLYCAEMIC COMA [None]
